FAERS Safety Report 4791853-6 (Version None)
Quarter: 2005Q4

REPORT INFORMATION
  Report Type: 
  Country: None (occurrence: None)
  Receive Date: 20051005
  Receipt Date: 20050922
  Transmission Date: 20060501
  Serious: Yes (Death)
  Sender: FDA-Public Use
  Company Number: 2005126572

PATIENT
  Sex: Female

DRUGS (4)
  1. IDARUBICIN HCL [Suspect]
     Indication: ACUTE PROMYELOCYTIC LEUKAEMIA
     Dosage: 5 MG/M2 (CYCLICAL), INTRAVENOUS
     Route: 042
  2. ETOPOSIDE [Suspect]
     Indication: ACUTE PROMYELOCYTIC LEUKAEMIA
     Dosage: 100 MG/M2 (CYCLICAL), INTRAVENOUS
     Route: 042
  3. CYTARABINE [Suspect]
     Indication: ACUTE PROMYELOCYTIC LEUKAEMIA
     Dosage: 1000 MG/M2 (CYCLICAL), INTRAVENOUS
     Route: 042
  4. MITOXANRONE (MITOXANTRONE) [Suspect]
     Indication: ACUTE PROMYELOCYTIC LEUKAEMIA
     Dosage: 5 MG/M2 (CYCLICAL), INTRAVENOUS
     Route: 042

REACTIONS (3)
  - CHRONIC MYELOMONOCYTIC LEUKAEMIA [None]
  - ILL-DEFINED DISORDER [None]
  - TRANSPLANT [None]
